FAERS Safety Report 7484994-6 (Version None)
Quarter: 2011Q2

REPORT INFORMATION
  Report Type: 
  Country: None (occurrence: None)
  Receive Date: 20110517
  Receipt Date: 20101008
  Transmission Date: 20111010
  Serious: No
  Sender: FDA-Public Use
  Company Number: US-BAYER-201022383BCC

PATIENT
  Age: 15 Year
  Sex: Female
  Weight: 54.545 kg

DRUGS (3)
  1. ANTI-ACNE PREPARATIONS FOR TOPICAL USE [Concomitant]
  2. ONE-A-DAY TEEN ADVANTAGE FOR HER [Concomitant]
     Dosage: UNK
  3. ALEVE (CAPLET) [Suspect]
     Indication: BACK PAIN
     Dosage: 1 DF, UNK
     Route: 048
     Dates: start: 20101001, end: 20101007

REACTIONS (2)
  - URTICARIA [None]
  - PRURITUS [None]
